FAERS Safety Report 16909538 (Version 1)
Quarter: 2019Q4

REPORT INFORMATION
  Report Type: Spontaneous
  Country: CN (occurrence: CN)
  Receive Date: 20191011
  Receipt Date: 20191011
  Transmission Date: 20200122
  Serious: Yes (Other)
  Sender: FDA-Public Use
  Company Number: CN-PFIZER INC-2019436856

PATIENT
  Age: 50 Year
  Sex: Female

DRUGS (1)
  1. NORVASC [Suspect]
     Active Substance: AMLODIPINE BESYLATE
     Indication: NEPHROTIC SYNDROME
     Dosage: 5 MG, 1X/DAY
     Route: 048
     Dates: start: 20190901, end: 20190917

REACTIONS (4)
  - Off label use [Unknown]
  - Urinary retention [Recovering/Resolving]
  - Oedema [Recovering/Resolving]
  - Product use in unapproved indication [Unknown]

NARRATIVE: CASE EVENT DATE: 20190901
